FAERS Safety Report 9018746 (Version 1)
Quarter: 2013Q1

REPORT INFORMATION
  Report Type: Spontaneous
  Country: US (occurrence: US)
  Receive Date: 20130118
  Receipt Date: 20130118
  Transmission Date: 20140127
  Serious: Yes (Hospitalization)
  Sender: FDA-Public Use
  Company Number: US-009507513-1301USA004188

PATIENT
  Age: 9 Year
  Sex: Male

DRUGS (7)
  1. SINGULAIR [Suspect]
     Indication: DERMATITIS ATOPIC
  2. SINGULAIR [Suspect]
     Indication: DERMATITIS CONTACT
  3. NASONEX [Concomitant]
     Dosage: ONE SPRAY TO EACH NOSTRIL
     Route: 045
  4. TACROLIMUS [Concomitant]
     Route: 061
  5. ZYRTEC [Concomitant]
     Indication: DERMATITIS ATOPIC
     Dosage: 10 MG, UNK
  6. ADVAIR [Concomitant]
     Dosage: 100/50, ONE PUFF TWICE A DAY
     Route: 055
  7. DOXEPIN HYDROCHLORIDE [Concomitant]
     Indication: DERMATITIS CONTACT

REACTIONS (2)
  - Dermatitis exfoliative [Unknown]
  - Disease recurrence [Unknown]
